FAERS Safety Report 6948204-8 (Version None)
Quarter: 2010Q3

REPORT INFORMATION
  Report Type: 
  Country: None (occurrence: None)
  Receive Date: 20100828
  Receipt Date: 20091022
  Transmission Date: 20110219
  Serious: No
  Sender: FDA-Public Use
  Company Number: US-ABBOTT-09P-163-0604965-00

PATIENT
  Sex: Male
  Weight: 95.34 kg

DRUGS (3)
  1. NIASPAN [Suspect]
     Indication: BLOOD TRIGLYCERIDES INCREASED
     Dates: start: 20090922
  2. JENUMET [Concomitant]
     Indication: DIABETES MELLITUS
  3. FISH OIL [Concomitant]
     Indication: MINERAL SUPPLEMENTATION

REACTIONS (4)
  - BLOOD GLUCOSE INCREASED [None]
  - EYE PRURITUS [None]
  - FLUSHING [None]
  - OCULAR HYPERAEMIA [None]
